FAERS Safety Report 8275792-4 (Version None)
Quarter: 2012Q2

REPORT INFORMATION
  Report Type: 
  Country: None (occurrence: None)
  Receive Date: 20120410
  Receipt Date: 20120410
  Transmission Date: 20120825
  Serious: Yes (Hospitalization)
  Sender: FDA-Public Use
  Company Number: None

PATIENT
  Age: 32 Year
  Sex: Male
  Weight: 95.5 kg

DRUGS (1)
  1. PHENOBARBITAL TAB [Suspect]

REACTIONS (8)
  - TOXICOLOGIC TEST ABNORMAL [None]
  - DEPRESSED LEVEL OF CONSCIOUSNESS [None]
  - DRUG LEVEL ABOVE THERAPEUTIC [None]
  - SOMNOLENCE [None]
  - ATAXIA [None]
  - SELF-MEDICATION [None]
  - CONFUSIONAL STATE [None]
  - DYSARTHRIA [None]
